FAERS Safety Report 14262567 (Version 1)
Quarter: 2017Q4

REPORT INFORMATION
  Report Type: Spontaneous
  Country: CA (occurrence: CA)
  Receive Date: 20171208
  Receipt Date: 20171208
  Transmission Date: 20180321
  Serious: Yes (Other)
  Sender: FDA-Public Use
  Company Number: CA-AUROBINDO-AUR-APL-2017-44178

PATIENT
  Age: 67 Year
  Sex: Male
  Weight: 62 kg

DRUGS (1)
  1. AURO-NEVIRAPINE TABLET [Suspect]
     Active Substance: NEVIRAPINE
     Indication: HIV INFECTION
     Dosage: 20 MG, TWO TIMES A DAY
     Route: 048

REACTIONS (2)
  - Oral administration complication [Recovered/Resolved]
  - Product substitution issue [Recovered/Resolved]
